FAERS Safety Report 7375852-6 (Version None)
Quarter: 2011Q1

REPORT INFORMATION
  Report Type: 
  Country: None (occurrence: None)
  Receive Date: 20110325
  Receipt Date: 20110315
  Transmission Date: 20110831
  Serious: Yes (Hospitalization)
  Sender: FDA-Public Use
  Company Number: A0914491B

PATIENT
  Sex: Female
  Weight: 77.8 kg

DRUGS (1)
  1. TOPOTECAN [Suspect]
     Dosage: 1.5MGM CYCLIC
     Route: 048
     Dates: start: 20110210

REACTIONS (1)
  - ENTEROVESICAL FISTULA [None]
